FAERS Safety Report 22200176 (Version 6)
Quarter: 2023Q2

REPORT INFORMATION
  Report Type: Other
  Country: CO (occurrence: None)
  Receive Date: 20230412
  Receipt Date: 20230601
  Transmission Date: 20230721
  Serious: Yes (Death, Hospitalization, Other)
  Sender: FDA-Public Use
  Company Number: CO-ROCHE-3320737

PATIENT
  Age: 51 Year
  Sex: Male
  Weight: 78.8 kg

DRUGS (2)
  1. ALECTINIB [Suspect]
     Active Substance: ALECTINIB
     Indication: Lung cancer metastatic
     Dosage: START DATE OF MOST RECENT DOSE OF STUDY DRUG PRIOR TO AE/SAE 22/MAR/2023, 18/APR/2023?DOSE LAST STUD
     Route: 048
     Dates: start: 20220524
  2. APIXABAN [Concomitant]
     Active Substance: APIXABAN
     Indication: Deep vein thrombosis
     Route: 048
     Dates: end: 20230510

REACTIONS (5)
  - Endocarditis [Recovered/Resolved]
  - Dyspnoea [Not Recovered/Not Resolved]
  - Pneumonia [Fatal]
  - Pericardial effusion [Fatal]
  - Pleural effusion [Fatal]

NARRATIVE: CASE EVENT DATE: 20230322
